FAERS Safety Report 19126415 (Version 2)
Quarter: 2021Q2

REPORT INFORMATION
  Report Type: Spontaneous
  Country: FI (occurrence: FI)
  Receive Date: 20210413
  Receipt Date: 20210524
  Transmission Date: 20210717
  Serious: Yes (Other)
  Sender: FDA-Public Use
  Company Number: FI-ENDO PHARMACEUTICALS INC-2021-001670

PATIENT
  Sex: Male
  Weight: 61 kg

DRUGS (4)
  1. XIAPEX [Suspect]
     Active Substance: COLLAGENASE CLOSTRIDIUM HISTOLYTICUM
     Dosage: UNK UNKNOWN, UNKNOWN; FIRST INJECTION
     Route: 026
     Dates: start: 20190311
  2. XIAPEX [Suspect]
     Active Substance: COLLAGENASE CLOSTRIDIUM HISTOLYTICUM
     Indication: DUPUYTREN^S CONTRACTURE
     Dosage: UNK UNKNOWN, UNKNOWN;  SECOND INJECTION
     Route: 026
     Dates: start: 20190513
  3. DUTASTERIDE. [Concomitant]
     Active Substance: DUTASTERIDE
     Indication: BENIGN PROSTATIC HYPERPLASIA
     Dosage: UNK UNKNOWN, UNKNOWN; INTRAVITRESL INJECTION
     Route: 048
  4. AFLIBERCEPT [Concomitant]
     Active Substance: AFLIBERCEPT
     Indication: MACULAR DEGENERATION
     Dosage: UNK UNKNOWN, UNKNOWN
     Route: 050

REACTIONS (1)
  - Seronegative arthritis [Not Recovered/Not Resolved]

NARRATIVE: CASE EVENT DATE: 2019
